FAERS Safety Report 9037766 (Version 1)
Quarter: 2013Q1

REPORT INFORMATION
  Report Type: Report from Study
  Country: US (occurrence: US)
  Receive Date: 20130129
  Receipt Date: 20130129
  Transmission Date: 20140127
  Serious: No
  Sender: FDA-Public Use
  Company Number: US-ABBOTT-12P-163-0899568-00

PATIENT
  Age: 37 Year
  Sex: Male

DRUGS (7)
  1. HUMIRA 40 MG/0.8 ML PEN [Suspect]
     Indication: PSORIATIC ARTHROPATHY
     Dates: start: 20110916
  2. HUMIRA 40 MG/0.8 ML PEN [Suspect]
     Indication: RHEUMATOID ARTHRITIS
  3. HUMIRA 40 MG/0.8 ML PEN [Suspect]
     Indication: FIBROMYALGIA
  4. ADVIL [Concomitant]
     Indication: PAIN
     Route: 048
  5. TYLENOL [Concomitant]
     Indication: PAIN
     Route: 048
  6. LORTAB [Concomitant]
     Indication: PAIN
     Dosage: VERY INFREQUENTLY
     Route: 048
  7. DHEA [Concomitant]
     Indication: BLOOD TESTOSTERONE DECREASED
     Dates: start: 201111, end: 201112

REACTIONS (18)
  - Back pain [Not Recovered/Not Resolved]
  - Musculoskeletal stiffness [Not Recovered/Not Resolved]
  - Local swelling [Unknown]
  - Hypoaesthesia [Unknown]
  - Asthenia [Unknown]
  - Fatigue [Unknown]
  - Mobility decreased [Unknown]
  - Acne [Not Recovered/Not Resolved]
  - Coeliac disease [Unknown]
  - Dizziness [Unknown]
  - Hypertension [Unknown]
  - Arthralgia [Unknown]
  - Arthralgia [Unknown]
  - Joint stiffness [Unknown]
  - Joint stiffness [Unknown]
  - Joint stiffness [Unknown]
  - Arthralgia [Unknown]
  - Asthenia [Unknown]
